FAERS Safety Report 5320660-0 (Version None)
Quarter: 2007Q2

REPORT INFORMATION
  Report Type: 
  Country: None (occurrence: None)
  Receive Date: 20070502
  Receipt Date: 20070122
  Transmission Date: 20071010
  Serious: Yes (Hospitalization, Other)
  Sender: FDA-Public Use
  Company Number: TPA2006A02249

PATIENT
  Age: 48 Year
  Sex: Female
  Weight: 77.1115 kg

DRUGS (7)
  1. ROZEREM [Suspect]
     Indication: AFFECTIVE DISORDER
     Dosage: 8 MG, 1 IN 1 D, PER ORAL
     Route: 048
     Dates: start: 20060929, end: 20061129
  2. ROZEREM [Suspect]
     Indication: INSOMNIA
     Dosage: 8 MG, 1 IN 1 D, PER ORAL
     Route: 048
     Dates: start: 20060929, end: 20061129
  3. ROZEREM [Suspect]
     Indication: SEASONAL AFFECTIVE DISORDER
     Dosage: 8 MG, 1 IN 1 D, PER ORAL
     Route: 048
     Dates: start: 20060929, end: 20061129
  4. LAMICTAL [Concomitant]
  5. WELLBUTRIN [Concomitant]
  6. EFFEXOR XR [Concomitant]
  7. KLONOPIN [Concomitant]

REACTIONS (12)
  - ANGER [None]
  - CONDITION AGGRAVATED [None]
  - DEPRESSION [None]
  - DRUG INEFFECTIVE [None]
  - DRUG SCREEN POSITIVE [None]
  - ECONOMIC PROBLEM [None]
  - FAMILY STRESS [None]
  - GENERAL PHYSICAL HEALTH DETERIORATION [None]
  - HALLUCINATION, AUDITORY [None]
  - INTENTIONAL SELF-INJURY [None]
  - LACERATION [None]
  - SUICIDAL IDEATION [None]
